FAERS Safety Report 4393314-5 (Version None)
Quarter: 2004Q3

REPORT INFORMATION
  Report Type: 
  Country: None (occurrence: None)
  Receive Date: 20040701
  Receipt Date: 20040624
  Transmission Date: 20050211
  Serious: Yes (Other)
  Sender: FDA-Public Use
  Company Number: CIP04001352

PATIENT
  Age: 71 Year
  Sex: Female

DRUGS (1)
  1. ACTONEL [Suspect]
     Indication: OSTEOPOROSIS
     Dosage: 35 MG, ORAL
     Route: 048
     Dates: start: 20040501, end: 20040501

REACTIONS (2)
  - DIPLOPIA [None]
  - VISUAL DISTURBANCE [None]
